FAERS Safety Report 7139409-4 (Version None)
Quarter: 2010Q4

REPORT INFORMATION
  Report Type: 
  Country: None (occurrence: None)
  Receive Date: 20101206
  Receipt Date: 20101117
  Transmission Date: 20110411
  Serious: Yes (Other)
  Sender: FDA-Public Use
  Company Number: US-PFIZER INC-2010153777

PATIENT
  Age: 51 Year
  Sex: Female
  Weight: 90.703 kg

DRUGS (3)
  1. ADVIL [Suspect]
     Dosage: 1 UNK, UNK
  2. SINGULAIR [Suspect]
  3. ZYRTEC [Suspect]

REACTIONS (3)
  - COELIAC DISEASE [None]
  - DIARRHOEA [None]
  - RASH [None]
